FAERS Safety Report 18404011 (Version 1)
Quarter: 2020Q4

REPORT INFORMATION
  Report Type: Spontaneous
  Country: US (occurrence: US)
  Receive Date: 20201020
  Receipt Date: 20201020
  Transmission Date: 20210114
  Serious: No
  Sender: FDA-Public Use
  Company Number: US-JNJFOC-20201018852

PATIENT
  Age: 19 Year
  Sex: Female

DRUGS (5)
  1. LAMICTAL [Concomitant]
     Active Substance: LAMOTRIGINE
  2. BUSPAR [Concomitant]
     Active Substance: BUSPIRONE HYDROCHLORIDE
  3. SPRAVATO [Suspect]
     Active Substance: ESKETAMINE
     Indication: DEPRESSION
  4. WELLBUTRIN [Concomitant]
     Active Substance: BUPROPION HYDROCHLORIDE
  5. REXULTI [Concomitant]
     Active Substance: BREXPIPRAZOLE

REACTIONS (2)
  - Hypotension [Recovering/Resolving]
  - Sedation [Recovering/Resolving]

NARRATIVE: CASE EVENT DATE: 20201012
